FAERS Safety Report 10652324 (Version 3)
Quarter: 2015Q1

REPORT INFORMATION
  Report Type: Spontaneous
  Country: DE (occurrence: DE)
  Receive Date: 20141215
  Receipt Date: 20150102
  Transmission Date: 20150720
  Serious: Yes (Hospitalization)
  Sender: FDA-Public Use
  Company Number: DE-JNJFOC-20140601315

PATIENT
  Age: 57 Year
  Sex: Female

DRUGS (4)
  1. AKINETON [Suspect]
     Active Substance: BIPERIDEN HYDROCHLORIDE
     Indication: PRODUCT USED FOR UNKNOWN INDICATION
     Route: 048
  2. HALOPERIDOL. [Suspect]
     Active Substance: HALOPERIDOL
     Indication: PRODUCT USED FOR UNKNOWN INDICATION
     Route: 048
  3. ALPRAZOLAM. [Suspect]
     Active Substance: ALPRAZOLAM
     Indication: PRODUCT USED FOR UNKNOWN INDICATION
     Route: 048
  4. LITHIUM [Suspect]
     Active Substance: LITHIUM CARBONATE
     Indication: PRODUCT USED FOR UNKNOWN INDICATION
     Route: 048

REACTIONS (17)
  - Aspartate aminotransferase increased [Unknown]
  - Blood lactate dehydrogenase increased [Unknown]
  - Sluggishness [Recovered/Resolved]
  - White blood cell count increased [Unknown]
  - Prothrombin time abnormal [Unknown]
  - Disorientation [Recovered/Resolved]
  - Blood urea increased [Unknown]
  - Delirium [Recovered/Resolved]
  - Blood creatine phosphokinase increased [Unknown]
  - Aphasia [Recovered/Resolved]
  - Hemiparesis [Recovered/Resolved]
  - Blood creatinine increased [Unknown]
  - Blood potassium decreased [Recovered/Resolved]
  - Agitation [Recovered/Resolved]
  - Glomerular filtration rate decreased [Unknown]
  - Accidental exposure to product [Recovered/Resolved]
  - Blood sodium decreased [Recovered/Resolved]

NARRATIVE: CASE EVENT DATE: 20140602
